FAERS Safety Report 7218173-4 (Version None)
Quarter: 2010Q4

REPORT INFORMATION
  Report Type: 
  Country: None (occurrence: None)
  Receive Date: 20101230
  Receipt Date: 20101210
  Transmission Date: 20110411
  Serious: Yes (Disabling)
  Sender: FDA-Public Use
  Company Number: JPI-P-013238

PATIENT
  Age: 27 Year
  Sex: Male

DRUGS (5)
  1. XYREM [Suspect]
     Indication: CATAPLEXY
     Dosage: 6 GM (3 GM, 2 IN 1 D), ORAL, 3 GM (1.5 GM, 2 IN 1 D), ORAL
     Route: 048
     Dates: start: 20101119, end: 20101122
  2. XYREM [Suspect]
     Indication: CATAPLEXY
     Dosage: 6 GM (3 GM, 2 IN 1 D), ORAL, 3 GM (1.5 GM, 2 IN 1 D), ORAL
     Route: 048
     Dates: start: 20101123, end: 20101125
  3. CLOMIPRAMINE HCL [Suspect]
     Indication: CATAPLEXY
     Dosage: 50 MG (25 MG, 2 IN 1 D),  25 MG (25 MG, 1 IN 1 D)
     Dates: start: 20101119, end: 20101122
  4. CLOMIPRAMINE HCL [Suspect]
     Indication: CATAPLEXY
     Dosage: 50 MG (25 MG, 2 IN 1 D),  25 MG (25 MG, 1 IN 1 D)
     Dates: start: 20101123
  5. ROPINIROLE [Concomitant]

REACTIONS (6)
  - ABASIA [None]
  - ACTIVITIES OF DAILY LIVING IMPAIRED [None]
  - CONDITION AGGRAVATED [None]
  - MUSCULOSKELETAL STIFFNESS [None]
  - SALIVARY HYPERSECRETION [None]
  - TREMOR [None]
